FAERS Safety Report 4934828-6 (Version None)
Quarter: 2006Q1

REPORT INFORMATION
  Report Type: 
  Country: None (occurrence: None)
  Receive Date: 20060303
  Receipt Date: 20060215
  Transmission Date: 20060701
  Serious: Yes (Other)
  Sender: FDA-Public Use
  Company Number: 2005BI020838

PATIENT
  Age: 64 Year
  Sex: Male

DRUGS (5)
  1. AMEVIVE [Suspect]
     Indication: PSORIASIS
     Dosage: 15 MG; QW; IM; SEE IMAGE
     Route: 030
     Dates: start: 20031223, end: 20040308
  2. AMEVIVE [Suspect]
     Indication: PSORIASIS
     Dosage: 15 MG; QW; IM; SEE IMAGE
     Route: 030
     Dates: start: 20040607, end: 20040826
  3. ZOCOR [Concomitant]
  4. ASPIRIN [Concomitant]
  5. TYLENOL (CAPLET) [Concomitant]

REACTIONS (4)
  - B-CELL LYMPHOMA [None]
  - BONE MARROW DISORDER [None]
  - FIBROSIS [None]
  - NON-HODGKIN'S LYMPHOMA [None]
